FAERS Safety Report 25346396 (Version 1)
Quarter: 2025Q2

REPORT INFORMATION
  Report Type: Report from Study
  Country: US (occurrence: US)
  Receive Date: 20250522
  Receipt Date: 20250522
  Transmission Date: 20250717
  Serious: Yes (Hospitalization)
  Sender: ABBVIE
  Company Number: US-ABBVIE-6193580

PATIENT
  Age: 79 Year
  Sex: Male
  Weight: 78.47 kg

DRUGS (2)
  1. VYALEV [Suspect]
     Active Substance: FOSCARBIDOPA\FOSLEVODOPA
     Indication: Product used for unknown indication
     Route: 058
  2. NUPLAZID [Concomitant]
     Active Substance: PIMAVANSERIN TARTRATE
     Indication: Product used for unknown indication

REACTIONS (4)
  - Localised infection [Recovered/Resolved]
  - Incorrect dosage administered [Unknown]
  - Feeling abnormal [Unknown]
  - Hallucination [Unknown]
